FAERS Safety Report 16088274 (Version 2)
Quarter: 2019Q1

REPORT INFORMATION
  Report Type: Spontaneous
  Country: GB (occurrence: GB)
  Receive Date: 20190319
  Receipt Date: 20190320
  Transmission Date: 20190418
  Serious: Yes (Other)
  Sender: FDA-Public Use
  Company Number: GB-PFIZER INC-2019115545

PATIENT
  Age: 24 Year
  Sex: Female

DRUGS (3)
  1. DOXORUBICIN HCL [Suspect]
     Active Substance: DOXORUBICIN HYDROCHLORIDE
     Indication: OSTEOSARCOMA
     Dosage: UNK, CYCLIC, TOTAL DOSES WERE 540 MG
     Dates: end: 197606
  2. DACARBAZINE. [Suspect]
     Active Substance: DACARBAZINE
     Indication: OSTEOSARCOMA
     Dosage: UNK, CYCLIC, TOTAL DOSES WERE  4500 MG
     Dates: end: 197606
  3. METHOTREXATE SODIUM. [Suspect]
     Active Substance: METHOTREXATE SODIUM
     Indication: OSTEOSARCOMA
     Dosage: UNK, CYCLIC, TOTAL DOSES WERE  480 MG
     Dates: end: 197606

REACTIONS (2)
  - Second primary malignancy [Unknown]
  - Acute myeloid leukaemia [Unknown]

NARRATIVE: CASE EVENT DATE: 198408
